FAERS Safety Report 8859419 (Version 1)
Quarter: 2012Q4

REPORT INFORMATION
  Report Type: 
  Country: US (occurrence: US)
  Receive Date: 20121024
  Receipt Date: 20121024
  Transmission Date: 20130627
  Serious: Yes (Other)
  Sender: FDA-Public Use
  Company Number: US-ASTRAZENECA-2012SE29000

PATIENT
  Sex: Male

DRUGS (5)
  1. TOPROL XL [Suspect]
     Route: 048
  2. TOPROL XL [Suspect]
     Dosage: GENERIC
     Route: 048
  3. NORVASC [Concomitant]
  4. KLONOPIN [Concomitant]
  5. DIOVAN [Concomitant]

REACTIONS (1)
  - Myocardial infarction [Unknown]
